FAERS Safety Report 7321951-4 (Version None)
Quarter: 2011Q1

REPORT INFORMATION
  Report Type: 
  Country: None (occurrence: None)
  Receive Date: 20110216
  Receipt Date: 20110202
  Transmission Date: 20110831
  Serious: Yes (Hospitalization, Disabling)
  Sender: FDA-Public Use
  Company Number: 2011P1003851

PATIENT
  Age: 69 Year
  Sex: Female
  Weight: 66.6788 kg

DRUGS (18)
  1. CRESTOR [Concomitant]
  2. POTASSIUM GLUCONATE TAB [Concomitant]
  3. WOMAN'S ONE A DAY MULTIVITAMIN [Concomitant]
  4. GLYBURIDE [Concomitant]
  5. GABAPENTIN [Concomitant]
  6. ASPIRIN [Concomitant]
  7. MAGNESIUM 400 MG [Concomitant]
  8. NEXIUM [Concomitant]
  9. LUBIPROSTONE [Concomitant]
  10. GARLIC SUPPLEMENT [Concomitant]
  11. DIPHENHYDRAMINE HCL [Concomitant]
  12. HYDROCODONE 10/650 MG [Concomitant]
  13. MICARDIS HCT [Concomitant]
  14. LAMOTRIGINE [Suspect]
     Indication: BIPOLAR II DISORDER
     Dosage: (1 TABLET; PO) (2 TABLET) (1 TABLET) PO
     Route: 048
     Dates: start: 20101211, end: 20101211
  15. LAMOTRIGINE [Suspect]
     Indication: BIPOLAR II DISORDER
     Dosage: (1 TABLET; PO) (2 TABLET) (1 TABLET) PO
     Route: 048
     Dates: start: 20101212, end: 20101212
  16. LAMOTRIGINE [Suspect]
     Indication: BIPOLAR II DISORDER
     Dosage: (1 TABLET; PO) (2 TABLET) (1 TABLET) PO
     Route: 048
     Dates: start: 20101213, end: 20101215
  17. MILNACIPRAN [Concomitant]
  18. FISH OIL [Concomitant]

REACTIONS (12)
  - TREMOR [None]
  - AGITATION [None]
  - FALL [None]
  - MEMORY IMPAIRMENT [None]
  - SCREAMING [None]
  - BALANCE DISORDER [None]
  - DYSURIA [None]
  - REFUSAL OF TREATMENT BY PATIENT [None]
  - INCORRECT DOSE ADMINISTERED [None]
  - HYPERTENSION [None]
  - FUMBLING [None]
  - CEREBROVASCULAR ACCIDENT [None]
